FAERS Safety Report 17989214 (Version 1)
Quarter: 2020Q3

REPORT INFORMATION
  Report Type: Spontaneous
  Country: DE (occurrence: DE)
  Receive Date: 20200707
  Receipt Date: 20200707
  Transmission Date: 20201103
  Serious: Yes (Hospitalization)
  Sender: FDA-Public Use
  Company Number: DE-MYLANLABS-2020M1060793

PATIENT
  Age: 3 Day
  Sex: Female
  Weight: 1.74 kg

DRUGS (5)
  1. TRAMADOL. [Suspect]
     Active Substance: TRAMADOL
     Indication: PAIN
     Route: 064
  2. PARACETAMOL [Suspect]
     Active Substance: ACETAMINOPHEN
     Indication: PAIN
     Route: 064
  3. POTASSIUM [Suspect]
     Active Substance: POTASSIUM
     Indication: MINERAL SUPPLEMENTATION
     Route: 064
  4. METHYLDOPA. [Suspect]
     Active Substance: METHYLDOPA
     Indication: HYPERTENSION
     Dosage: 500 MILLIGRAM, QID, FOUR TIMES A DAY
     Route: 064
  5. METYRAPONE [Suspect]
     Active Substance: METYRAPONE
     Indication: HYPERADRENOCORTICISM
     Dosage: 250 MILLIGRAM, QID,FOUR TIMES A DAY
     Route: 064

REACTIONS (2)
  - Foetal exposure during pregnancy [Recovered/Resolved]
  - Hyponatraemia [Recovered/Resolved]
